FAERS Safety Report 4350255-7 (Version None)
Quarter: 2004Q2

REPORT INFORMATION
  Report Type: 
  Country: None (occurrence: None)
  Receive Date: 20040426
  Receipt Date: 20040414
  Transmission Date: 20050107
  Serious: No
  Sender: FDA-Public Use
  Company Number: 04H-144-0257866-00

PATIENT
  Age: 54 Year
  Sex: Female

DRUGS (14)
  1. LEUCOVORIN CALCIUM [Suspect]
     Indication: CHEMOTHERAPY
  2. IFOSFAMIDE [Suspect]
     Indication: CHEMOTHERAPY
     Dosage: 800 MG/M2, NOT REPORTED
  3. DEXAMETHASONE [Suspect]
     Indication: CHEMOTHERAPY
     Dosage: 10 MG/M2
  4. VINCRISTINE [Suspect]
     Indication: CHEMOTHERAPY
     Dosage: 2 MG, ONCE, NOT REPORTED
  5. METHOTREXATE [Suspect]
     Indication: CHEMOTHERAPY
     Dosage: 3 G/M**2,
  6. ETOPOSIDE [Suspect]
     Indication: CHEMOTHERAPY
     Dosage: 100 MG/M2,
  7. CYTARABINE [Suspect]
     Indication: CHEMOTHERAPY
     Dosage: 150 MG/M2, II IN 12 HR
  8. CYCLOPHOSPHAMIDE [Suspect]
     Indication: CHEMOTHERAPY
     Dosage: 200 MG/M2, NOT REPORTED
  9. DOXORUBICIN HCL [Suspect]
     Indication: CHEMOTHERAPY
     Dosage: 25 MG/M2
  10. PREDNISONE [Concomitant]
  11. CYCLOPHOSPHAMIDE [Concomitant]
  12. .... [Concomitant]
  13. ..... [Concomitant]
  14. HYDROCORTISONE [Concomitant]

REACTIONS (6)
  - ENTEROCOCCAL BACTERAEMIA [None]
  - HEPATOTOXICITY [None]
  - NEPHROPATHY TOXIC [None]
  - NEUTROPENIA [None]
  - STAPHYLOCOCCAL BACTERAEMIA [None]
  - THROMBOCYTOPENIA [None]
